FAERS Safety Report 16979255 (Version 2)
Quarter: 2020Q1

REPORT INFORMATION
  Report Type: Spontaneous
  Country: US (occurrence: US)
  Receive Date: 20191031
  Receipt Date: 20200204
  Transmission Date: 20200409
  Serious: No
  Sender: FDA-Public Use
  Company Number: US-HIKMA PHARMACEUTICALS USA INC.-US-H14001-19-04927

PATIENT
  Sex: Female

DRUGS (2)
  1. BOSENTAN. [Suspect]
     Active Substance: BOSENTAN
     Indication: PULMONARY HYPERTENSION
  2. BOSENTAN. [Suspect]
     Active Substance: BOSENTAN
     Indication: RAYNAUD^S PHENOMENON
     Route: 048
     Dates: start: 20150619

REACTIONS (5)
  - Blood calcium increased [Unknown]
  - Mean platelet volume increased [Unknown]
  - Off label use [Unknown]
  - Glucose tolerance impaired [Unknown]
  - Vein disorder [Not Recovered/Not Resolved]
